FAERS Safety Report 25871440 (Version 2)
Quarter: 2025Q4

REPORT INFORMATION
  Report Type: Spontaneous
  Country: JP (occurrence: JP)
  Receive Date: 20251001
  Receipt Date: 20251001
  Transmission Date: 20260118
  Serious: Yes (Hospitalization, Other)
  Sender: DAITO PHARMACEUTICALS
  Company Number: JP-Daito Pharmaceutical Co., Ltd.-2185725

PATIENT
  Age: 33 Year
  Sex: Female

DRUGS (5)
  1. METHOTREXATE SODIUM [Suspect]
     Active Substance: METHOTREXATE SODIUM
     Indication: Choriocarcinoma
  2. ETOPOSIDE [Suspect]
     Active Substance: ETOPOSIDE
  3. VINCRISTINE [Suspect]
     Active Substance: VINCRISTINE
  4. CYCLOPHOSPHAMIDE [Suspect]
     Active Substance: CYCLOPHOSPHAMIDE
  5. DACTINOMYCIN [Suspect]
     Active Substance: DACTINOMYCIN

REACTIONS (3)
  - Metastases to liver [Recovered/Resolved]
  - Shock haemorrhagic [Recovered/Resolved]
  - Liver carcinoma ruptured [Recovered/Resolved]
